FAERS Safety Report 17324746 (Version 1)
Quarter: 2020Q1

REPORT INFORMATION
  Report Type: Spontaneous
  Country: CA (occurrence: CA)
  Receive Date: 20200127
  Receipt Date: 20200127
  Transmission Date: 20200409
  Serious: Yes (Hospitalization, Other)
  Sender: FDA-Public Use
  Company Number: CA-JNJFOC-20200122378

PATIENT

DRUGS (8)
  1. BIPHENTIN [Concomitant]
     Active Substance: METHYLPHENIDATE
     Indication: PRODUCT USED FOR UNKNOWN INDICATION
     Route: 065
  2. PULMICORT TURBUHALER [Concomitant]
     Active Substance: BUDESONIDE
     Indication: PRODUCT USED FOR UNKNOWN INDICATION
     Route: 065
  3. CONCERTA [Suspect]
     Active Substance: METHYLPHENIDATE HYDROCHLORIDE
     Indication: PRODUCT USED FOR UNKNOWN INDICATION
     Route: 065
  4. CODEINE [Suspect]
     Active Substance: CODEINE
     Indication: PRODUCT USED FOR UNKNOWN INDICATION
     Route: 065
  5. SALBUTAMOL [Concomitant]
     Active Substance: ALBUTEROL
     Indication: PRODUCT USED FOR UNKNOWN INDICATION
     Route: 065
  6. OMALIZUMAB. [Suspect]
     Active Substance: OMALIZUMAB
     Indication: ASTHMA
     Route: 065
  7. VYVANSE [Suspect]
     Active Substance: LISDEXAMFETAMINE DIMESYLATE
     Indication: DISTURBANCE IN ATTENTION
     Route: 065
  8. ZENHALE [Concomitant]
     Active Substance: FORMOTEROL FUMARATE\MOMETASONE FUROATE
     Indication: PRODUCT USED FOR UNKNOWN INDICATION
     Route: 065

REACTIONS (33)
  - Ear pain [Unknown]
  - Sinus congestion [Unknown]
  - Dry eye [Unknown]
  - Sinusitis [Unknown]
  - Diarrhoea [Unknown]
  - Nausea [Unknown]
  - Somnolence [Unknown]
  - Abdominal distension [Unknown]
  - Tooth resorption [Unknown]
  - Gastrooesophageal reflux disease [Unknown]
  - Gingival pain [Unknown]
  - Heart rate increased [Unknown]
  - Gingival erythema [Unknown]
  - Confusional state [Unknown]
  - Headache [Unknown]
  - Mood swings [Unknown]
  - Pain [Unknown]
  - Tremor [Unknown]
  - Eye allergy [Unknown]
  - Pyrexia [Unknown]
  - Bronchitis bacterial [Unknown]
  - Eczema [Unknown]
  - Hypersensitivity [Unknown]
  - Haematochezia [Unknown]
  - Gingivitis [Unknown]
  - Ocular hyperaemia [Unknown]
  - Abdominal pain [Unknown]
  - Dyspepsia [Unknown]
  - Gingival swelling [Unknown]
  - Irritable bowel syndrome [Unknown]
  - Skin plaque [Unknown]
  - Dizziness [Unknown]
  - Productive cough [Unknown]
